FAERS Safety Report 15801525 (Version 1)
Quarter: 2019Q1

REPORT INFORMATION
  Report Type: Spontaneous
  Country: TR (occurrence: TR)
  Receive Date: 20190109
  Receipt Date: 20190109
  Transmission Date: 20190417
  Serious: Yes (Hospitalization)
  Sender: FDA-Public Use
  Company Number: TR-MYLANLABS-2019M1001317

PATIENT
  Age: 55 Year
  Sex: Female

DRUGS (1)
  1. TENOFOVIR [Suspect]
     Active Substance: TENOFOVIR
     Indication: CHRONIC HEPATITIS B
     Route: 065

REACTIONS (3)
  - Fanconi syndrome acquired [Recovered/Resolved]
  - Hypophosphataemic osteomalacia [Recovering/Resolving]
  - Pseudofracture [Recovering/Resolving]
